FAERS Safety Report 6683370-3 (Version None)
Quarter: 2010Q2

REPORT INFORMATION
  Report Type: 
  Country: None (occurrence: None)
  Receive Date: 20100415
  Receipt Date: 20091006
  Transmission Date: 20101027
  Serious: No
  Sender: FDA-Public Use
  Company Number: A0810566A

PATIENT
  Age: 92 Year
  Sex: Male

DRUGS (3)
  1. LEUKERAN [Suspect]
     Indication: B-CELL LYMPHOMA
     Dosage: 3TAB TWICE PER DAY
     Route: 048
     Dates: start: 20090520
  2. PREDNISONE [Concomitant]
  3. TYLENOL-500 [Concomitant]

REACTIONS (2)
  - ADVERSE EVENT [None]
  - NIGHT SWEATS [None]
